FAERS Safety Report 18068135 (Version 2)
Quarter: 2020Q3

REPORT INFORMATION
  Report Type: Spontaneous
  Country: GB (occurrence: GB)
  Receive Date: 20200724
  Receipt Date: 20200807
  Transmission Date: 20201103
  Serious: Yes (Death, Life-Threatening, Hospitalization, Other)
  Sender: FDA-Public Use
  Company Number: GB-MYLANLABS-2020M1066930

PATIENT
  Age: 56 Year
  Sex: Female

DRUGS (2)
  1. CLOZARIL [Suspect]
     Active Substance: CLOZAPINE
     Indication: SCHIZOPHRENIA
     Dosage: 50 MILLIGRAM, MORNING
     Route: 048
     Dates: start: 20090707
  2. CLOZARIL [Suspect]
     Active Substance: CLOZAPINE
     Dosage: 400 MILLIGRAM, EVENING
     Route: 048
     Dates: start: 20090707

REACTIONS (4)
  - Intestinal dilatation [Fatal]
  - Sepsis [Fatal]
  - Abdominal discomfort [Fatal]
  - Abdominal adhesions [Fatal]

NARRATIVE: CASE EVENT DATE: 20200716
